FAERS Safety Report 5788951-7 (Version None)
Quarter: 2008Q2

REPORT INFORMATION
  Report Type: 
  Country: None (occurrence: None)
  Receive Date: 20080623
  Receipt Date: 20080616
  Transmission Date: 20081010
  Serious: Yes (Death, Life-Threatening)
  Sender: FDA-Public Use
  Company Number: 2008-02191

PATIENT
  Age: 62 Year
  Sex: Male

DRUGS (2)
  1. VELCADE [Suspect]
     Indication: MULTIPLE MYELOMA
     Dosage: 2.3 MG, INTRAVENOUS
     Route: 042
     Dates: start: 20080225
  2. DEXAMEHASONE [Concomitant]

REACTIONS (11)
  - DISEASE PROGRESSION [None]
  - HAEMODYNAMIC INSTABILITY [None]
  - LUNG INFECTION PSEUDOMONAL [None]
  - MULTI-ORGAN DISORDER [None]
  - OBSTRUCTIVE AIRWAYS DISORDER [None]
  - PNEUMONIA HAEMOPHILUS [None]
  - PULMONARY EMBOLISM [None]
  - RENAL FAILURE [None]
  - RESPIRATORY DISTRESS [None]
  - SEPTIC SHOCK [None]
  - THERAPEUTIC RESPONSE DECREASED [None]
